FAERS Safety Report 4578463-0 (Version None)
Quarter: 2005Q1

REPORT INFORMATION
  Report Type: 
  Country: None (occurrence: None)
  Receive Date: 20050202
  Receipt Date: 20050202
  Transmission Date: 20050727
  Serious: Yes (Other)
  Sender: FDA-Public Use
  Company Number: None

PATIENT
  Age: 86 Year
  Sex: Male
  Weight: 77.1115 kg

DRUGS (2)
  1. CLINDAMYCIN HCL [Suspect]
     Dosage: 2 PER DAY
  2. LEVAQUIN [Suspect]
     Dosage: 1 PER DAY

REACTIONS (2)
  - RASH ERYTHEMATOUS [None]
  - RASH PRURITIC [None]
